FAERS Safety Report 10613531 (Version 2)
Quarter: 2014Q4

REPORT INFORMATION
  Report Type: Report from Study
  Country: NL (occurrence: NL)
  Receive Date: 20141128
  Receipt Date: 20141128
  Transmission Date: 20150529
  Serious: Yes (Life-Threatening, Hospitalization, Other)
  Sender: FDA-Public Use
  Company Number: NL-ROCHE-562665

PATIENT
  Age: 59 Year
  Weight: 109 kg

DRUGS (15)
  1. IMODIUM [Concomitant]
     Active Substance: LOPERAMIDE HYDROCHLORIDE
     Route: 065
  2. LIPITOR [Concomitant]
     Active Substance: ATORVASTATIN CALCIUM
     Route: 065
  3. ZANTAC [Concomitant]
     Active Substance: RANITIDINE HYDROCHLORIDE
     Route: 065
  4. ZOFRAN [Concomitant]
     Active Substance: ONDANSETRON HYDROCHLORIDE
     Route: 065
  5. PANTOPRAZOLE [Concomitant]
     Active Substance: PANTOPRAZOLE SODIUM
     Route: 065
  6. EPIRUBICIN [Suspect]
     Active Substance: EPIRUBICIN
     Indication: GASTRIC CANCER
     Dosage: THERAPY INTERRUPTED. AS PER PROTOCOL 50 MG/M2 ON D1 AS IV PUSH Q3W IMMEDIATE PRIOR TO CISPLATIN.
     Route: 042
     Dates: start: 20080417
  7. CISPLATIN. [Suspect]
     Active Substance: CISPLATIN
     Indication: GASTRIC CANCER
     Dosage: PROTOCOL DOSE: 60 MG/M2 ON DAY 1 INTRAVENOUSLY Q3W WITH HYDRATION. THERAPY INTERRUPTED.
     Route: 042
     Dates: start: 20080417
  8. NYSTATINE [Concomitant]
     Dosage: DRUG NAME: NYSTATINE 2 G/ML
     Route: 065
  9. SELDANE [Concomitant]
     Active Substance: TERFENADINE
     Route: 065
  10. TRITACE [Concomitant]
     Active Substance: RAMIPRIL
     Route: 065
  11. CHLOORTALIDON [Concomitant]
     Route: 065
  12. LANTUS [Concomitant]
     Active Substance: INSULIN GLARGINE
     Route: 065
  13. LIDOCAINE. [Concomitant]
     Active Substance: LIDOCAINE
     Dosage: DRUG NAME: LIDOCAINE GEL.
     Route: 065
  14. NOVORAPID [Concomitant]
     Active Substance: INSULIN ASPART
     Route: 065
  15. CAPECITABINE. [Suspect]
     Active Substance: CAPECITABINE
     Indication: GASTRIC CANCER
     Dosage: FREQUENCY REPORTED AS: 2DD1. AS PER PROTOCOL, TWO EQUALLY DIVIDED DOSES 1000 MG/M2, BID.
     Route: 048
     Dates: start: 20080417

REACTIONS (4)
  - Stomatitis [Recovered/Resolved]
  - Pyrexia [Unknown]
  - Oral pain [Unknown]
  - Diarrhoea [Recovered/Resolved]

NARRATIVE: CASE EVENT DATE: 20080425
